FAERS Safety Report 16790218 (Version 1)
Quarter: 2019Q3

REPORT INFORMATION
  Report Type: Spontaneous
  Country: BE (occurrence: BE)
  Receive Date: 20190910
  Receipt Date: 20190910
  Transmission Date: 20191005
  Serious: Yes (Other)
  Sender: FDA-Public Use
  Company Number: BE-009507513-1909BEL000888

PATIENT
  Age: 75 Year
  Sex: Male

DRUGS (4)
  1. SIMVASTATIN. [Suspect]
     Active Substance: SIMVASTATIN
     Indication: PROPHYLAXIS
     Dosage: 1 DOSAGE FORM, QD
     Route: 048
  2. METFORMIN [Suspect]
     Active Substance: METFORMIN HYDROCHLORIDE
     Dosage: 1 DOSAGE FORM, QD
  3. L-THYROXIN [Suspect]
     Active Substance: LEVOTHYROXINE SODIUM
     Indication: THROMBOPHLEBITIS
     Dosage: 1 DOSAGE FORM, QD
  4. ATENOLOL. [Suspect]
     Active Substance: ATENOLOL
     Dosage: 1 DOSAGE FORM, QD

REACTIONS (1)
  - Pulmonary fibrosis [Unknown]
